FAERS Safety Report 25030030 (Version 1)
Quarter: 2025Q1

REPORT INFORMATION
  Report Type: Spontaneous
  Country: ES (occurrence: ES)
  Receive Date: 20250303
  Receipt Date: 20250303
  Transmission Date: 20250409
  Serious: Yes (Other)
  Sender: BOEHRINGER INGELHEIM
  Company Number: None

PATIENT
  Age: 67 Year
  Sex: Male

DRUGS (3)
  1. MICARDIS [Suspect]
     Active Substance: TELMISARTAN
     Indication: Product used for unknown indication
     Route: 048
     Dates: start: 20241128
  2. METFORMINA SANDOZ 850 mg COMPRIMIDOS RECUBIERTOS CON PELICULA EFG, 60 [Concomitant]
     Indication: Product used for unknown indication
     Route: 048
     Dates: start: 20241122
  3. AMILORIDE HYDROCHLORIDE\HYDROCHLOROTHIAZIDE [Concomitant]
     Active Substance: AMILORIDE HYDROCHLORIDE\HYDROCHLOROTHIAZIDE
     Indication: Product used for unknown indication
     Route: 048
     Dates: start: 20230421

REACTIONS (2)
  - Pruritus [Not Recovered/Not Resolved]
  - Prurigo [Not Recovered/Not Resolved]

NARRATIVE: CASE EVENT DATE: 20241101
